FAERS Safety Report 9990617 (Version 1)
Quarter: 2014Q1

REPORT INFORMATION
  Report Type: Report from Study
  Country: US (occurrence: US)
  Receive Date: 20140310
  Receipt Date: 20140310
  Transmission Date: 20141002
  Serious: No
  Sender: FDA-Public Use
  Company Number: US-ABBVIE-13P-163-1135546-00

PATIENT
  Age: 44 Year
  Sex: Female
  Weight: 111.23 kg

DRUGS (11)
  1. HUMIRA [Suspect]
     Indication: ANKYLOSING SPONDYLITIS
     Dates: start: 201210, end: 201212
  2. HUMIRA [Suspect]
     Dates: start: 20130731
  3. STEROIDS [Suspect]
     Indication: ANKYLOSING SPONDYLITIS
  4. PREDNISONE [Concomitant]
     Indication: ANKYLOSING SPONDYLITIS
  5. CELEBREX [Concomitant]
     Indication: ANKYLOSING SPONDYLITIS
  6. ZOLOFT [Concomitant]
     Indication: DEPRESSION
  7. LEVOTHYROXINE [Concomitant]
     Indication: HYPOTHYROIDISM
  8. VITAMIN D [Concomitant]
     Indication: VITAMIN D DEFICIENCY
  9. PRIMROSE OIL [Concomitant]
     Indication: DEPRESSION
  10. ASPIRIN [Concomitant]
     Indication: FACTOR V DEFICIENCY
  11. ASPIRIN [Concomitant]
     Indication: LEFT VENTRICULAR HYPERTROPHY

REACTIONS (2)
  - Furuncle [Recovered/Resolved]
  - Drug ineffective [Not Recovered/Not Resolved]
